FAERS Safety Report 8004524-X (Version None)
Quarter: 2011Q4

REPORT INFORMATION
  Report Type: 
  Country: None (occurrence: None)
  Receive Date: 20111221
  Receipt Date: 20111221
  Transmission Date: 20120403
  Serious: Yes (Hospitalization)
  Sender: FDA-Public Use
  Company Number: None

PATIENT
  Age: 33 Year
  Sex: Female
  Weight: 78 kg

DRUGS (3)
  1. ANTACIDS [Concomitant]
  2. INFED [Suspect]
     Indication: ANAEMIA
     Dosage: 25MG ONCE IVPB RECENT
  3. IRON TABLETS [Concomitant]

REACTIONS (2)
  - ANAEMIA [None]
  - ANAPHYLACTIC REACTION [None]
